FAERS Safety Report 21188714 (Version 1)
Quarter: 2022Q3

REPORT INFORMATION
  Report Type: Spontaneous
  Country: NL (occurrence: NL)
  Receive Date: 20220809
  Receipt Date: 20220809
  Transmission Date: 20221026
  Serious: Yes (Hospitalization, Other)
  Sender: FDA-Public Use
  Company Number: NL-TEVA-147742ISR

PATIENT
  Age: 53 Year
  Sex: Male

DRUGS (4)
  1. BORTEZOMIB [Suspect]
     Active Substance: BORTEZOMIB
     Indication: Non-small cell lung cancer stage IIIB
     Dosage: 1 MICROGRAM/SQ. METER
     Route: 042
  2. CISPLATIN [Suspect]
     Active Substance: CISPLATIN
     Indication: Non-small cell lung cancer stage IIIB
     Dosage: 70 MILLIGRAM/SQ. METER, ONCE A DAY
     Route: 042
  3. GEMZAR [Suspect]
     Active Substance: GEMCITABINE HYDROCHLORIDE
     Indication: Non-small cell lung cancer stage IIIB
     Dosage: 1000 MILLIGRAM/SQ. METER, ONCE A DAY
     Route: 042
  4. VELCADE [Suspect]
     Active Substance: BORTEZOMIB
     Indication: Lung neoplasm malignant
     Dosage: 1 MILLIGRAM/SQ. METER
     Route: 065

REACTIONS (9)
  - Cardiac failure congestive [Recovered/Resolved]
  - Dyspnoea [Unknown]
  - Dilatation atrial [Unknown]
  - Fatigue [Unknown]
  - Dilatation ventricular [Unknown]
  - Orthopnoea [Unknown]
  - Dyspnoea exertional [Unknown]
  - Neoplasm progression [Not Recovered/Not Resolved]
  - Anaemia [Unknown]
